FAERS Safety Report 5662567-5 (Version None)
Quarter: 2008Q1

REPORT INFORMATION
  Report Type: 
  Country: None (occurrence: None)
  Receive Date: 20080313
  Receipt Date: 20080313
  Transmission Date: 20080703
  Serious: Yes (Death)
  Sender: FDA-Public Use
  Company Number: None

PATIENT
  Age: 52 Year
  Sex: Male
  Weight: 74.8435 kg

DRUGS (2)
  1. HEPARIN [Suspect]
     Indication: MYOCARDIAL INFARCTION
     Dosage: 4000 UNITS IV BOLUS
     Route: 040
     Dates: start: 20070716, end: 20070717
  2. HEPARIN [Suspect]
     Dosage: 900 UNITS PER HOUR IV DRIP
     Route: 041

REACTIONS (4)
  - AGGRESSION [None]
  - CARDIAC FIBRILLATION [None]
  - VENTRICULAR FIBRILLATION [None]
  - VOMITING [None]
